FAERS Safety Report 10610382 (Version 1)
Quarter: 2014Q4

REPORT INFORMATION
  Report Type: Spontaneous
  Country: GB (occurrence: None)
  Receive Date: 20141124
  Receipt Date: 20141124
  Transmission Date: 20150529
  Serious: Yes (Hospitalization, Other)
  Sender: FDA-Public Use
  Company Number: FK201405461

PATIENT
  Age: 17 Year
  Sex: Female
  Weight: 63.8 kg

DRUGS (5)
  1. PEGFILGRASTIM [Concomitant]
     Active Substance: PEGFILGRASTIM
  2. ETOPOSIDE. [Suspect]
     Active Substance: ETOPOSIDE
     Indication: OVARIAN GERM CELL CANCER
     Dosage: INTRAVENOUS (NOT SPECIFIED)
     Route: 042
     Dates: start: 20141006
  3. BLEOMYCIN [Suspect]
     Active Substance: BLEOMYCIN SULFATE
     Indication: OVARIAN GERM CELL CANCER
     Dosage: 30000 IU, INTRAVENOUS (NOT SPECIFIED)
     Route: 042
     Dates: start: 20141006
  4. CISPLATIN. [Suspect]
     Active Substance: CISPLATIN
     Indication: OVARIAN GERM CELL CANCER
     Dosage: 90 MG, INTRAVENOUS (NOT SPECIFIED)
     Route: 042
     Dates: start: 20141006
  5. CYCLIZINE [Concomitant]
     Active Substance: CYCLIZINE

REACTIONS (1)
  - Neutropenic sepsis [None]

NARRATIVE: CASE EVENT DATE: 20141014
